FAERS Safety Report 7080791-4 (Version None)
Quarter: 2010Q4

REPORT INFORMATION
  Report Type: 
  Country: None (occurrence: None)
  Receive Date: 20101103
  Receipt Date: 20101022
  Transmission Date: 20110411
  Serious: Yes (Other)
  Sender: FDA-Public Use
  Company Number: CA-SANOFI-AVENTIS-2010SA064797

PATIENT
  Age: 86 Year
  Sex: Female

DRUGS (6)
  1. MULTAQ [Suspect]
     Route: 048
     Dates: start: 20100501
  2. MULTAQ [Suspect]
     Route: 048
     Dates: start: 20100101
  3. ALL OTHER THERAPEUTIC PRODUCTS [Concomitant]
     Indication: OSTEOPOROSIS
     Dosage: 60 MG EVERY 6 MONTHS
  4. QUINOLONE ANTIBACTERIALS [Concomitant]
     Indication: INFECTION
  5. CEFZIL [Concomitant]
     Indication: INFECTION
  6. LEVAQUIN [Concomitant]
     Indication: INFECTION

REACTIONS (6)
  - DECREASED APPETITE [None]
  - DIZZINESS POSTURAL [None]
  - HYPERHIDROSIS [None]
  - SYNCOPE [None]
  - UNDERDOSE [None]
  - WEIGHT DECREASED [None]
